FAERS Safety Report 12663472 (Version 1)
Quarter: 2016Q3

REPORT INFORMATION
  Report Type: Spontaneous
  Country: US (occurrence: None)
  Receive Date: 20160817
  Receipt Date: 20160817
  Transmission Date: 20161109
  Serious: No
  Sender: FDA-Public Use
  Company Number: None

PATIENT
  Age: 61 Year
  Sex: Female
  Weight: 86.4 kg

DRUGS (3)
  1. HEPARIN SODIUN INJ 10,000 USP / 10 ML FRESNIUS KABI ? [Suspect]
     Active Substance: HEPARIN SODIUM
     Indication: PERCUTANEOUS CORONARY INTERVENTION
     Dosage: 6000 THEN 1000 UNITS
     Dates: start: 20160726
  2. MEDTRONIC ACT [Concomitant]
  3. MEDRONIC ACT PLUS [Concomitant]

REACTIONS (1)
  - Therapeutic response decreased [None]

NARRATIVE: CASE EVENT DATE: 20160726
